FAERS Safety Report 10413504 (Version 1)
Quarter: 2014Q3

REPORT INFORMATION
  Report Type: Spontaneous
  Country: GB (occurrence: GB)
  Receive Date: 20140827
  Receipt Date: 20140827
  Transmission Date: 20150326
  Serious: Yes (Hospitalization, Other)
  Sender: FDA-Public Use
  Company Number: PHHY2014GB106778

PATIENT

DRUGS (2)
  1. COCODAMOL [Suspect]
     Active Substance: ACETAMINOPHEN\CODEINE PHOSPHATE
     Route: 064
  2. PARACETAMOL [Suspect]
     Active Substance: ACETAMINOPHEN
     Route: 064

REACTIONS (5)
  - Foetal exposure during pregnancy [Unknown]
  - Hepatic enzyme increased [Recovered/Resolved]
  - Premature baby [Unknown]
  - Respiratory distress [Recovered/Resolved]
  - Liver function test abnormal [Recovered/Resolved]
